FAERS Safety Report 21788288 (Version 1)
Quarter: 2022Q4

REPORT INFORMATION
  Report Type: Spontaneous
  Country: US (occurrence: US)
  Receive Date: 20221228
  Receipt Date: 20221228
  Transmission Date: 20230113
  Serious: No
  Sender: FDA-Public Use
  Company Number: US-PFIZER INC-202201391975

PATIENT
  Age: 63 Year
  Sex: Female

DRUGS (5)
  1. PAXLOVID [Suspect]
     Active Substance: NIRMATRELVIR\RITONAVIR
     Indication: COVID-19 treatment
     Dosage: UNK
     Dates: start: 20221209, end: 20221214
  2. AZITHROMYCIN [Suspect]
     Active Substance: AZITHROMYCIN
     Dosage: 500 MG
  3. DEXAMETHASONE [Suspect]
     Active Substance: DEXAMETHASONE
     Dosage: 4 MG
  4. ALECENSA [Concomitant]
     Active Substance: ALECTINIB HYDROCHLORIDE
     Dosage: UNK
     Dates: start: 20171001
  5. NP THYROID [Concomitant]
     Active Substance: LEVOTHYROXINE\LIOTHYRONINE
     Dosage: UNK
     Dates: start: 20201215

REACTIONS (6)
  - Fluid retention [Recovering/Resolving]
  - Weight increased [Recovering/Resolving]
  - Swelling face [Recovering/Resolving]
  - Constipation [Recovering/Resolving]
  - Electric shock sensation [Recovering/Resolving]
  - Peripheral sensory neuropathy [Recovering/Resolving]

NARRATIVE: CASE EVENT DATE: 20221201
